FAERS Safety Report 6286572-3 (Version None)
Quarter: 2009Q3

REPORT INFORMATION
  Report Type: 
  Country: None (occurrence: None)
  Receive Date: 20090728
  Receipt Date: 20090716
  Transmission Date: 20100115
  Serious: Yes (Other)
  Sender: FDA-Public Use
  Company Number: US-BRISTOL-MYERS SQUIBB COMPANY-14710222

PATIENT
  Age: 65 Year
  Sex: Female
  Weight: 69 kg

DRUGS (13)
  1. CETUXIMAB [Suspect]
     Indication: NON-SMALL CELL LUNG CANCER
     Dosage: CHIMERIC ANTI-EGFR MAB.RECENT INF ON 09JUN09.
     Route: 042
     Dates: start: 20090602, end: 20090623
  2. CARBOPLATIN [Suspect]
     Indication: NON-SMALL CELL LUNG CANCER
     Route: 042
     Dates: start: 20090602, end: 20090623
  3. GEMCITABINE [Suspect]
     Indication: NON-SMALL CELL LUNG CANCER
     Dosage: RECENT INF ON 09JUN09.
     Route: 042
     Dates: start: 20090602, end: 20090623
  4. LIPITOR [Concomitant]
     Route: 048
  5. PROTONIX [Concomitant]
     Route: 048
  6. LISINOPRIL [Concomitant]
     Route: 048
  7. ROZEREM [Concomitant]
     Indication: INSOMNIA
     Route: 048
  8. CENTRUM SILVER [Concomitant]
     Indication: VITAMIN SUPPLEMENTATION
     Dosage: 1 DF = 1 TAB
     Route: 048
  9. CALCIUM CARBONATE [Concomitant]
     Indication: OSTEOPOROSIS
     Dosage: 4 DF = 4 TABS
     Route: 048
  10. IMODIUM [Concomitant]
     Indication: DIARRHOEA
     Route: 048
  11. ONDANSETRON [Concomitant]
     Indication: ANTIEMETIC SUPPORTIVE CARE
     Route: 048
     Dates: start: 20090702
  12. LEXAPRO [Concomitant]
     Dosage: UNKNOWN - 02JUL2009:15 MG, QD, ORAL 02JUL2009 - UNKNOWN:20 MG, QD, ORAL
     Route: 048
  13. METOCLOPRAMIDE [Concomitant]
     Indication: ANTIEMETIC SUPPORTIVE CARE
     Route: 048
     Dates: start: 20090708

REACTIONS (1)
  - THROMBOCYTOPENIA [None]
